FAERS Safety Report 8420209-X (Version None)
Quarter: 2012Q2

REPORT INFORMATION
  Report Type: 
  Country: None (occurrence: None)
  Receive Date: 20120607
  Receipt Date: 20120524
  Transmission Date: 20120825
  Serious: Yes (Other)
  Sender: FDA-Public Use
  Company Number: US-ASTRAZENECA-2012SE37379

PATIENT
  Age: 6 Month
  Sex: Male

DRUGS (4)
  1. LIDOCAINE [Suspect]
     Indication: ANALGESIC THERAPY
     Route: 042
  2. LIDOCAINE [Suspect]
     Route: 040
  3. LIDOCAINE [Suspect]
     Route: 040
  4. LIDOCAINE [Suspect]
     Indication: ANAESTHESIA
     Route: 042

REACTIONS (2)
  - CONVULSION [None]
  - OVERDOSE [None]
